FAERS Safety Report 7840997-0 (Version None)
Quarter: 2011Q4

REPORT INFORMATION
  Report Type: 
  Country: None (occurrence: None)
  Receive Date: 20111021
  Receipt Date: 20111021
  Transmission Date: 20120403
  Serious: Yes (Hospitalization)
  Sender: FDA-Public Use
  Company Number: None

PATIENT
  Age: 54 Year
  Sex: Female
  Weight: 88.2 kg

DRUGS (14)
  1. BACTRIM [Concomitant]
  2. DEXAMETHASONE [Concomitant]
  3. ANTIVERT [Concomitant]
  4. DIFLUCAN [Concomitant]
  5. NEXIUM [Concomitant]
  6. ASPIRIN [Concomitant]
  7. OXYCODONE HCL [Concomitant]
  8. ACYCLOVIR [Concomitant]
  9. FERROUS SULFATE TAB [Concomitant]
  10. TRAMADOL HCL [Concomitant]
  11. FOSAMAX [Concomitant]
  12. POMALIDOMIDE 2MG CAPSULES CELGENE [Suspect]
     Indication: MULTIPLE MYELOMA
     Dosage: 4MG/DAY DAILY FOR 21 DAYS PO
     Route: 048
     Dates: start: 20110802, end: 20110927
  13. M.V.I. [Concomitant]
  14. OXYCONTIN [Concomitant]

REACTIONS (4)
  - INFECTION [None]
  - DIARRHOEA [None]
  - BACTERIAL TEST POSITIVE [None]
  - FEBRILE NEUTROPENIA [None]
